FAERS Safety Report 4947920-7 (Version None)
Quarter: 2006Q1

REPORT INFORMATION
  Report Type: 
  Country: None (occurrence: None)
  Receive Date: 20060314
  Receipt Date: 20060301
  Transmission Date: 20060701
  Serious: Yes (Other)
  Sender: FDA-Public Use
  Company Number: 2006030015

PATIENT
  Age: 22 Year
  Sex: Male

DRUGS (8)
  1. DORAL [Suspect]
     Indication: ILL-DEFINED DISORDER
     Dosage: ORAL
     Route: 048
  2. DEPAS (ETIZOLAM) [Suspect]
     Indication: ILL-DEFINED DISORDER
  3. PAROXETINE HCL [Suspect]
     Indication: ILL-DEFINED DISORDER
  4. RISPERIDONE [Suspect]
     Indication: ILL-DEFINED DISORDER
  5. FLUNITRAZEPAM (FLUNITRAZEPAM) [Suspect]
     Indication: ILL-DEFINED DISORDER
  6. LORAZEPAM [Suspect]
     Indication: ILL-DEFINED DISORDER
  7. NITRAZEPAM [Suspect]
     Indication: ILL-DEFINED DISORDER
  8. BIPERIDEN (BIPERIDEN) [Suspect]
     Indication: ILL-DEFINED DISORDER

REACTIONS (3)
  - COMA [None]
  - MULTIPLE DRUG OVERDOSE INTENTIONAL [None]
  - SUICIDE ATTEMPT [None]
